FAERS Safety Report 25080923 (Version 2)
Quarter: 2025Q2

REPORT INFORMATION
  Report Type: Spontaneous
  Country: US (occurrence: US)
  Receive Date: 20250315
  Receipt Date: 20250402
  Transmission Date: 20250716
  Serious: Yes (Hospitalization, Other)
  Sender: AUROBINDO
  Company Number: US-MLMSERVICE-20250224-PI427147-00117-1

PATIENT
  Age: 11 Year
  Sex: Female

DRUGS (6)
  1. DEXAMETHASONE [Suspect]
     Active Substance: DEXAMETHASONE
     Indication: Ganglioglioma
     Dosage: 9 MILLIGRAM, ONCE A DAY ()
     Route: 065
     Dates: start: 202202
  2. DEXAMETHASONE [Suspect]
     Active Substance: DEXAMETHASONE
     Dosage: 5 MILLIGRAM, ONCE A DAY (HIGH-DOSE)
     Route: 065
     Dates: start: 2022, end: 2022
  3. AVASTIN [Concomitant]
     Active Substance: BEVACIZUMAB
     Indication: Ganglioglioma
     Route: 042
  4. SEMAGLUTIDE [Concomitant]
     Active Substance: SEMAGLUTIDE
     Indication: Type 2 diabetes mellitus
     Route: 065
     Dates: start: 202206
  5. SEMAGLUTIDE [Concomitant]
     Active Substance: SEMAGLUTIDE
     Route: 065
     Dates: start: 202206
  6. HYDROCORTISONE [Concomitant]
     Active Substance: HYDROCORTISONE
     Indication: Type 2 diabetes mellitus
     Route: 065

REACTIONS (9)
  - Steroid diabetes [Recovering/Resolving]
  - Impaired healing [Unknown]
  - Type 2 diabetes mellitus [Unknown]
  - Abnormal weight gain [Recovering/Resolving]
  - Hypertension [Unknown]
  - Asthenia [Unknown]
  - Abdominal pain [Unknown]
  - Headache [Unknown]
  - Obesity [Unknown]

NARRATIVE: CASE EVENT DATE: 20220101
